FAERS Safety Report 14267887 (Version 1)
Quarter: 2017Q4

REPORT INFORMATION
  Report Type: Spontaneous
  Country: US (occurrence: US)
  Receive Date: 20171211
  Receipt Date: 20171211
  Transmission Date: 20180321
  Serious: Yes (Death)
  Sender: FDA-Public Use
  Company Number: None

PATIENT
  Age: 65 Year
  Sex: Male
  Weight: 90 kg

DRUGS (19)
  1. PLAVIX [Concomitant]
     Active Substance: CLOPIDOGREL BISULFATE
  2. BABY ASPIRIN [Concomitant]
     Active Substance: ASPIRIN
  3. PREDNISONE. [Concomitant]
     Active Substance: PREDNISONE
  4. DIOVAN-VALSARTIN [Concomitant]
  5. VITAMIN D [Concomitant]
     Active Substance: CHOLECALCIFEROL
  6. VITAMIN B [Concomitant]
     Active Substance: VITAMIN B
  7. TECENTRIQ [Suspect]
     Active Substance: ATEZOLIZUMAB
     Indication: PRODUCT USED FOR UNKNOWN INDICATION
     Route: 042
     Dates: start: 20170323, end: 20170504
  8. AMBIEN [Concomitant]
     Active Substance: ZOLPIDEM TARTRATE
  9. LARAZEPAM [Concomitant]
  10. LIPITOR [Concomitant]
     Active Substance: ATORVASTATIN CALCIUM
  11. FLOMAX [Concomitant]
     Active Substance: TAMSULOSIN HYDROCHLORIDE
  12. POTASSIUM [Concomitant]
     Active Substance: POTASSIUM
  13. MULTI-VITAMIN [Concomitant]
     Active Substance: .ALPHA.-TOCOPHEROL ACETATE, DL-\ASCORBIC ACID\CYANOCOBALAMIN\FLUORIDE ION\FOLIC ACID\NIACIN\PYRIDOXINE\RIBOFLAVIN\THIAMINE\VITAMIN A\VITAMIN D
  14. HUMALOG [Concomitant]
     Active Substance: INSULIN LISPRO
  15. TYLENOL EXTRA STRENGTH [Concomitant]
     Active Substance: ACETAMINOPHEN
  16. LEVEMIR [Concomitant]
     Active Substance: INSULIN DETEMIR
  17. CYMBALTA [Concomitant]
     Active Substance: DULOXETINE HYDROCHLORIDE
  18. PRILOSEC [Concomitant]
     Active Substance: OMEPRAZOLE MAGNESIUM
  19. LASIX [Concomitant]
     Active Substance: FUROSEMIDE

REACTIONS (3)
  - Dyspnoea [None]
  - Cardiac disorder [None]
  - Lung disorder [None]

NARRATIVE: CASE EVENT DATE: 20170419
